FAERS Safety Report 7397209-4 (Version None)
Quarter: 2011Q2

REPORT INFORMATION
  Report Type: 
  Country: None (occurrence: None)
  Receive Date: 20110406
  Receipt Date: 20110325
  Transmission Date: 20111010
  Serious: Yes (Other)
  Sender: FDA-Public Use
  Company Number: US-SANOFI-AVENTIS-2011SA018903

PATIENT
  Age: 79 Year
  Sex: Male

DRUGS (4)
  1. SERZONE [Concomitant]
  2. MULTAQ [Suspect]
     Route: 065
     Dates: start: 20101001
  3. FINASTERIDE [Concomitant]
  4. MULTAQ [Suspect]
     Indication: ATRIAL FIBRILLATION
     Route: 065
     Dates: start: 20091201, end: 20100101

REACTIONS (1)
  - BLADDER CANCER [None]
